FAERS Safety Report 13725876 (Version 1)
Quarter: 2017Q3

REPORT INFORMATION
  Report Type: Spontaneous
  Country: US (occurrence: US)
  Receive Date: 20170706
  Receipt Date: 20170706
  Transmission Date: 20171127
  Serious: Yes (Other)
  Sender: FDA-Public Use
  Company Number: None

PATIENT
  Age: 37 Year
  Sex: Female
  Weight: 49.5 kg

DRUGS (1)
  1. KOSE BB CREAM SPF40 PA [Suspect]
     Active Substance: BEMOTRIZINOL\BISOCTRIZOLE\OCTINOXATE\TITANIUM DIOXIDE
     Indication: PROPHYLAXIS AGAINST SOLAR RADIATION
     Route: 061
     Dates: start: 20170625, end: 20170626

REACTIONS (2)
  - Skin irritation [None]
  - Product label issue [None]

NARRATIVE: CASE EVENT DATE: 20170625
